FAERS Safety Report 9250632 (Version 1)
Quarter: 2013Q1

REPORT INFORMATION
  Report Type: Spontaneous
  Country: US (occurrence: None)
  Receive Date: 20130305
  Receipt Date: 20130305
  Transmission Date: 20140127
  Serious: Yes (Other)
  Sender: FDA-Public Use
  Company Number: 163-21880-12062907

PATIENT
  Age: 58 Year
  Sex: Female
  Weight: 78.93 kg

DRUGS (6)
  1. REVLIMID [Suspect]
     Indication: PLASMA CELL MYELOMA
     Dosage: 21 IN 28 D
     Route: 048
     Dates: start: 20110513, end: 20120203
  2. VERAMYST (FLUTICASONE FUROATE) [Concomitant]
  3. FLOVENT (FLUTICASONE PROPIONATE) [Concomitant]
  4. MAGNESIUM (MAGNESIUM) [Concomitant]
  5. CALCIUM (CALCIUM) [Concomitant]
  6. PLAQUENIL (HYDROXYCHLOROQUINE PHOSPHATE) [Concomitant]

REACTIONS (3)
  - Productive cough [None]
  - Respiratory tract congestion [None]
  - Muscle spasms [None]
